FAERS Safety Report 6206348-2 (Version None)
Quarter: 2009Q2

REPORT INFORMATION
  Report Type: 
  Country: None (occurrence: None)
  Receive Date: 20090528
  Receipt Date: 20090520
  Transmission Date: 20091009
  Serious: Yes (Hospitalization, Other)
  Sender: FDA-Public Use
  Company Number: PHHY2009BR19042

PATIENT
  Sex: Male
  Weight: 77.5 kg

DRUGS (3)
  1. FORASEQ [Suspect]
     Indication: ASTHMA
     Dosage: EVERY 12 HOURS
  2. DIPHTHERIA AND TETANUS VACCINE [Concomitant]
  3. FLU VACCINE [Concomitant]
     Dosage: UNK
     Dates: start: 20090504

REACTIONS (3)
  - DEVICE MALFUNCTION [None]
  - DIABETES MELLITUS [None]
  - PNEUMONIA [None]
